FAERS Safety Report 6104634-8 (Version None)
Quarter: 2009Q1

REPORT INFORMATION
  Report Type: 
  Country: None (occurrence: None)
  Receive Date: 20090303
  Receipt Date: 20090219
  Transmission Date: 20090719
  Serious: Yes (Disabling)
  Sender: FDA-Public Use
  Company Number: INOX-PR-0902S-0001

PATIENT
  Sex: Female

DRUGS (1)
  1. INDIUM IN-111 OXYQUINOLINE [Suspect]
     Indication: DRUG USE FOR UNKNOWN INDICATION
     Dosage: SINGLE DOSE
     Dates: start: 20090201, end: 20090201

REACTIONS (2)
  - ABASIA [None]
  - JOINT STIFFNESS [None]
